FAERS Safety Report 7247580-9 (Version None)
Quarter: 2011Q1

REPORT INFORMATION
  Report Type: 
  Country: None (occurrence: None)
  Receive Date: 20110127
  Receipt Date: 20110119
  Transmission Date: 20110831
  Serious: Yes (Other)
  Sender: FDA-Public Use
  Company Number: US-PFIZER INC-2011013482

PATIENT
  Sex: Female
  Weight: 58.957 kg

DRUGS (3)
  1. LYRICA [Suspect]
     Indication: FIBROMYALGIA
     Dosage: UNK
     Route: 048
     Dates: start: 20080901, end: 20080101
  2. LYRICA [Suspect]
     Indication: SCIATICA
     Dosage: 300 MG, 3X/DAY
     Dates: start: 20100101
  3. LORTAB [Concomitant]
     Indication: PAIN
     Dosage: UNK
     Dates: start: 20050101

REACTIONS (2)
  - IMPAIRED WORK ABILITY [None]
  - ANXIETY [None]
